FAERS Safety Report 15149436 (Version 1)
Quarter: 2018Q3

REPORT INFORMATION
  Report Type: Spontaneous
  Country: JP (occurrence: JP)
  Receive Date: 20180716
  Receipt Date: 20180716
  Transmission Date: 20181010
  Serious: Yes (Other)
  Sender: FDA-Public Use
  Company Number: JP-PFIZER INC-2018280757

PATIENT

DRUGS (3)
  1. AMLODIPINE BESILATE [Suspect]
     Active Substance: AMLODIPINE BESYLATE
  2. BLOPRESS [Suspect]
     Active Substance: CANDESARTAN CILEXETIL
  3. ARTIST [Suspect]
     Active Substance: CARVEDILOL

REACTIONS (2)
  - Dyspnoea [Unknown]
  - Seizure [Unknown]
